FAERS Safety Report 16031565 (Version 1)
Quarter: 2019Q1

REPORT INFORMATION
  Report Type: Spontaneous
  Country: FR (occurrence: FR)
  Receive Date: 20190304
  Receipt Date: 20190304
  Transmission Date: 20190418
  Serious: Yes (Other)
  Sender: FDA-Public Use
  Company Number: FR-PFIZER INC-2014248185

PATIENT
  Age: 76 Year
  Sex: Female

DRUGS (12)
  1. OROCAL [Concomitant]
  2. DILATRANE [Concomitant]
  3. DAFALGAN [Concomitant]
     Active Substance: ACETAMINOPHEN
  4. KARDEGIC [Concomitant]
     Active Substance: ASPIRIN DL-LYSINE
  5. TRIFLUCAN [Suspect]
     Active Substance: FLUCONAZOLE
     Dosage: UNK
     Route: 048
     Dates: start: 20140808, end: 20140810
  6. SIMVASTATIN. [Concomitant]
     Active Substance: SIMVASTATIN
  7. IZILOX [Concomitant]
     Active Substance: MOXIFLOXACIN HYDROCHLORIDE
     Dosage: UNK
     Dates: start: 20140717, end: 20140720
  8. ONBREZ [Concomitant]
     Active Substance: INDACATEROL
  9. BETNEVAL [Concomitant]
     Active Substance: BETAMETHASONE VALERATE
  10. CEFTRIAXONE SODIUM. [Suspect]
     Active Substance: CEFTRIAXONE SODIUM
     Dosage: 1 DF, 1X/DAY
     Route: 042
     Dates: start: 20140808, end: 20140811
  11. SPIRIVA [Concomitant]
     Active Substance: TIOTROPIUM BROMIDE MONOHYDRATE
  12. VENTOLINE [Concomitant]
     Active Substance: ALBUTEROL

REACTIONS (1)
  - Fixed eruption [Unknown]

NARRATIVE: CASE EVENT DATE: 20140809
